FAERS Safety Report 5929523-0 (Version None)
Quarter: 2008Q4

REPORT INFORMATION
  Report Type: 
  Country: None (occurrence: None)
  Receive Date: 20081024
  Receipt Date: 20081015
  Transmission Date: 20090506
  Serious: Yes (Hospitalization)
  Sender: FDA-Public Use
  Company Number: B0532292A

PATIENT
  Age: 86 Year
  Sex: Male

DRUGS (5)
  1. AUGMENTIN '125' [Suspect]
     Dosage: 1G SINGLE DOSE
     Route: 042
     Dates: start: 20080705, end: 20080705
  2. PRIMPERAN [Suspect]
     Dosage: 10MG PER DAY
     Route: 042
     Dates: start: 20080705, end: 20080706
  3. SPASFON [Concomitant]
     Dosage: 2AMP PER DAY
     Route: 042
     Dates: start: 20080705, end: 20080706
  4. GENTAMICIN [Concomitant]
     Dosage: 210MG SINGLE DOSE
     Route: 042
     Dates: start: 20080705, end: 20080705
  5. PERFALGAN [Concomitant]
     Dosage: 1INJ AS REQUIRED
     Route: 042
     Dates: start: 20080705

REACTIONS (8)
  - ACUTE GENERALISED EXANTHEMATOUS PUSTULOSIS [None]
  - ERYTHEMA [None]
  - HYPERSENSITIVITY [None]
  - PRURITUS [None]
  - RASH PUSTULAR [None]
  - SKIN EXFOLIATION [None]
  - SKIN LESION [None]
  - TRYPTASE INCREASED [None]
